FAERS Safety Report 6033328-2 (Version None)
Quarter: 2009Q1

REPORT INFORMATION
  Report Type: 
  Country: None (occurrence: None)
  Receive Date: 20090109
  Receipt Date: 20090106
  Transmission Date: 20090719
  Serious: Yes (Hospitalization)
  Sender: FDA-Public Use
  Company Number: FR-WYE-G02883409

PATIENT
  Sex: Male

DRUGS (7)
  1. TAZOCILLINE [Suspect]
     Route: 042
     Dates: start: 20081021, end: 20081113
  2. AMBISOME [Concomitant]
     Route: 042
     Dates: start: 20081021, end: 20081124
  3. NOXAFIL [Concomitant]
     Route: 042
     Dates: start: 20081103, end: 20081124
  4. CANCIDAS [Concomitant]
     Route: 042
     Dates: start: 20081031, end: 20081124
  5. VANCOMYCIN HYDROCHLORIDE [Suspect]
     Dosage: UNKNOWN
     Route: 042
     Dates: start: 20081013, end: 20081027
  6. VANCOMYCIN HYDROCHLORIDE [Suspect]
     Dosage: UNKNOWN
     Route: 042
     Dates: start: 20081116, end: 20081119
  7. ZYVOXID [Suspect]
     Route: 042
     Dates: start: 20081103, end: 20081112

REACTIONS (3)
  - DRUG RASH WITH EOSINOPHILIA AND SYSTEMIC SYMPTOMS [None]
  - RENAL FAILURE [None]
  - THROMBOCYTOPENIA [None]
